FAERS Safety Report 6868077-1 (Version None)
Quarter: 2010Q3

REPORT INFORMATION
  Report Type: 
  Country: None (occurrence: None)
  Receive Date: 20100722
  Receipt Date: 20100712
  Transmission Date: 20110219
  Serious: Yes (Other)
  Sender: FDA-Public Use
  Company Number: US-SANOFI-AVENTIS-2010SA040737

PATIENT
  Age: 65 Year
  Sex: Male

DRUGS (4)
  1. MULTAQ [Suspect]
     Indication: ATRIAL FIBRILLATION
     Route: 048
     Dates: start: 20100101, end: 20100101
  2. SIMVASTATIN [Concomitant]
  3. ZAROXOLYN [Concomitant]
  4. TORSEMIDE [Concomitant]

REACTIONS (3)
  - BLOOD CREATININE INCREASED [None]
  - HEPATIC FAILURE [None]
  - RENAL FAILURE [None]
